FAERS Safety Report 6330576-9 (Version None)
Quarter: 2009Q3

REPORT INFORMATION
  Report Type: 
  Country: None (occurrence: None)
  Receive Date: 20090827
  Receipt Date: 20090819
  Transmission Date: 20100115
  Serious: Yes (Hospitalization)
  Sender: FDA-Public Use
  Company Number: JP-NOVOPROD-290742

PATIENT
  Age: 49 Year
  Sex: Male

DRUGS (4)
  1. NOVORAPID CHU [Suspect]
     Indication: DIABETES MELLITUS
     Dosage: 130 IU, UNK
     Route: 058
  2. NOVOLIN N [Suspect]
     Indication: DIABETES MELLITUS
  3. NOVOLIN N [Suspect]
  4. VEGETAMIN [Concomitant]

REACTIONS (5)
  - BLOOD GLUCOSE DECREASED [None]
  - DEPRESSED LEVEL OF CONSCIOUSNESS [None]
  - DIABETES MELLITUS INADEQUATE CONTROL [None]
  - HYPERINSULINAEMIA [None]
  - OVERDOSE [None]
